FAERS Safety Report 5640782-4 (Version None)
Quarter: 2008Q1

REPORT INFORMATION
  Report Type: 
  Country: None (occurrence: None)
  Receive Date: 20080225
  Receipt Date: 20080207
  Transmission Date: 20080703
  Serious: Yes (Other)
  Sender: FDA-Public Use
  Company Number: TRP_01063_2008

PATIENT
  Sex: Female

DRUGS (6)
  1. INFERGEN [Suspect]
     Indication: HEPATITIS C
     Dosage: 15 ?G QD SUBCUTANEOUS
     Route: 058
     Dates: start: 20071015
  2. RIBAVIRIN [Suspect]
     Indication: HEPATITIS C
     Dosage: 1400 MG [600/800 MG] ORAL
     Route: 047
  3. CLARITIN [Concomitant]
  4. NEUPOGEN [Concomitant]
  5. PAROXETINE HCL [Concomitant]
  6. TYLENOL EXTRA STRENGTH [Concomitant]

REACTIONS (3)
  - RED BLOOD CELL COUNT DECREASED [None]
  - TREATMENT FAILURE [None]
  - URTICARIA [None]
